FAERS Safety Report 16775370 (Version 1)
Quarter: 2019Q3

REPORT INFORMATION
  Report Type: Spontaneous
  Country: CA (occurrence: CA)
  Receive Date: 20190905
  Receipt Date: 20190905
  Transmission Date: 20191005
  Serious: Yes (Hospitalization)
  Sender: FDA-Public Use
  Company Number: CA-ORION CORPORATION ORION PHARMA-TREX2019-3188

PATIENT
  Sex: Female

DRUGS (11)
  1. METHOTREXATE (TRADE NAME UNKNOWN) [Suspect]
     Active Substance: METHOTREXATE
     Indication: PRODUCT USED FOR UNKNOWN INDICATION
     Route: 065
  2. LOSARTAN. [Concomitant]
     Active Substance: LOSARTAN
     Route: 065
  3. FOLIC ACID. [Concomitant]
     Active Substance: FOLIC ACID
     Route: 065
  4. ATENOLOL. [Concomitant]
     Active Substance: ATENOLOL
     Route: 065
  5. CALCIUM [Concomitant]
     Active Substance: CALCIUM
     Route: 065
  6. VITAMIN D [Concomitant]
     Active Substance: VITAMIN D NOS
     Route: 065
  7. ASA [Concomitant]
     Active Substance: ASPIRIN
     Route: 065
  8. ARAVA [Suspect]
     Active Substance: LEFLUNOMIDE
     Indication: PRODUCT USED FOR UNKNOWN INDICATION
     Route: 065
  9. HUMIRA [Suspect]
     Active Substance: ADALIMUMAB
     Indication: RHEUMATOID ARTHRITIS
     Route: 058
  10. PANTOPRAZOLE [Concomitant]
     Active Substance: PANTOPRAZOLE
     Route: 065
  11. ATORVASTATIN [Concomitant]
     Active Substance: ATORVASTATIN
     Route: 065

REACTIONS (4)
  - Asthenia [Recovered/Resolved]
  - White blood cell count decreased [Recovered/Resolved]
  - Fall [Recovered/Resolved]
  - Drug ineffective [Recovered/Resolved]
